FAERS Safety Report 24705048 (Version 2)
Quarter: 2025Q1

REPORT INFORMATION
  Report Type: Other
  Country: GB (occurrence: GB)
  Receive Date: 20241206
  Receipt Date: 20250325
  Transmission Date: 20250409
  Serious: Yes (Life-Threatening)
  Sender: MACLEODS
  Company Number: GB-MHRA-EMIS-4113-1bce372c-1203-49f7-9004-cdbe4b9c41d1

PATIENT

DRUGS (8)
  1. ROSUVASTATIN [Suspect]
     Active Substance: ROSUVASTATIN
     Indication: Product used for unknown indication
     Dosage: ONE TO BE TAKEN EACH DAY
     Route: 065
  2. AMOXICILLIN [Concomitant]
     Active Substance: AMOXICILLIN
     Indication: Lung consolidation
     Dosage: ONE TO BE TAKEN THREE TIMES A DAY
     Route: 065
  3. PREDNISOLONE [Concomitant]
     Active Substance: PREDNISOLONE
     Indication: Adverse drug reaction
     Dosage: SIX TO BE TAKEN EACH DAY
     Route: 065
  4. MEBEVERINE [Concomitant]
     Active Substance: MEBEVERINE
     Indication: Abdominal pain
     Dosage: ONE TO BE TAKEN THREE TIMES A DAY TWENTY MINUTES BEFORE FOOD
     Route: 065
     Dates: start: 20240903
  5. MEBEVERINE [Concomitant]
     Active Substance: MEBEVERINE
     Indication: Abdominal pain
  6. ATORVASTATIN [Concomitant]
     Active Substance: ATORVASTATIN
     Indication: Adverse drug reaction
     Dosage: ONE TO BE TAKEN AT BEDTIME
     Route: 065
  7. PREDNISOLONE [Concomitant]
     Active Substance: PREDNISOLONE
     Indication: Adverse drug reaction
     Dosage: SIX TO BE TAKEN EACH DAY
     Route: 065
  8. Comirnaty [Concomitant]
     Indication: Product used for unknown indication
     Route: 030
     Dates: start: 20241102, end: 20241102

REACTIONS (2)
  - Dyspnoea [Recovered/Resolved]
  - Dyspnoea [Recovered/Resolved]

NARRATIVE: CASE EVENT DATE: 20241015
